FAERS Safety Report 8569518-4 (Version None)
Quarter: 2012Q3

REPORT INFORMATION
  Report Type: 
  Country: None (occurrence: None)
  Receive Date: 20120803
  Receipt Date: 20120305
  Transmission Date: 20120928
  Serious: No
  Sender: FDA-Public Use
  Company Number: US-ABBOTT-12P-163-0911855-00

PATIENT
  Sex: Female
  Weight: 73.094 kg

DRUGS (6)
  1. JANUMET [Concomitant]
     Indication: PRODUCT USED FOR UNKNOWN INDICATION
     Route: 048
  2. VISTARIL [Concomitant]
     Indication: INSOMNIA
     Dosage: AT BED TIME
     Route: 048
  3. VYTORIN [Concomitant]
     Indication: PRODUCT USED FOR UNKNOWN INDICATION
     Dosage: AT BED TIME
     Route: 048
  4. CELEXA [Concomitant]
     Indication: PRODUCT USED FOR UNKNOWN INDICATION
  5. NIASPAN [Suspect]
     Indication: BLOOD TRIGLYCERIDES INCREASED
     Route: 048
     Dates: start: 20120201
  6. GUANFACINE [Concomitant]
     Indication: PRODUCT USED FOR UNKNOWN INDICATION
     Route: 048

REACTIONS (5)
  - BURNING SENSATION [None]
  - PRURITUS [None]
  - SINUS HEADACHE [None]
  - FATIGUE [None]
  - FLUSHING [None]
